FAERS Safety Report 10227040 (Version 1)
Quarter: 2014Q2

REPORT INFORMATION
  Report Type: Spontaneous
  Country: US (occurrence: US)
  Receive Date: 20140610
  Receipt Date: 20140610
  Transmission Date: 20141212
  Serious: No
  Sender: FDA-Public Use
  Company Number: US-009507513-1406USA001677

PATIENT
  Age: 55 Year
  Sex: Female

DRUGS (7)
  1. PEGINTRON [Suspect]
     Indication: CHRONIC HEPATITIS C
     Dosage: UNK
     Route: 058
     Dates: start: 201401
  2. IMITREX (SUMATRIPTAN SUCCINATE) [Concomitant]
  3. OMEPRAZOLE [Concomitant]
  4. MIRTAZAPINE [Concomitant]
  5. METOPROLOL [Concomitant]
  6. XYZAL [Concomitant]
  7. TOPAMAX [Concomitant]

REACTIONS (3)
  - Back pain [Recovered/Resolved]
  - Musculoskeletal pain [Recovered/Resolved]
  - Pain in extremity [Recovered/Resolved]
